FAERS Safety Report 17039342 (Version 2)
Quarter: 2019Q4

REPORT INFORMATION
  Report Type: Spontaneous
  Country: JP (occurrence: JP)
  Receive Date: 20191115
  Receipt Date: 20191227
  Transmission Date: 20200122
  Serious: Yes (Death, Hospitalization)
  Sender: FDA-Public Use
  Company Number: JP-EISAI MEDICAL RESEARCH-EC-2019-065435

PATIENT

DRUGS (1)
  1. FYCOMPA [Suspect]
     Active Substance: PERAMPANEL
     Indication: EPILEPSY
     Dosage: DOSE AND FREQUENCY UNKNOWN
     Route: 048
     Dates: start: 2017

REACTIONS (1)
  - Blood count abnormal [Fatal]

NARRATIVE: CASE EVENT DATE: 2017
